FAERS Safety Report 8245324-5 (Version None)
Quarter: 2012Q1

REPORT INFORMATION
  Report Type: 
  Country: None (occurrence: None)
  Receive Date: 20120329
  Receipt Date: 20120321
  Transmission Date: 20120608
  Serious: Yes (Hospitalization)
  Sender: FDA-Public Use
  Company Number: US-BIOGENIDEC-2011BI002719

PATIENT
  Age: 61 Year
  Sex: Female
  Weight: 58 kg

DRUGS (3)
  1. AVONEX [Suspect]
     Route: 030
     Dates: start: 20030101, end: 20100501
  2. AVONEX [Suspect]
     Route: 030
     Dates: start: 20110110
  3. AVONEX [Suspect]
     Indication: MULTIPLE SCLEROSIS
     Route: 030
     Dates: start: 19990525

REACTIONS (15)
  - INTERVERTEBRAL DISC PROTRUSION [None]
  - DECREASED APPETITE [None]
  - PROCEDURAL PAIN [None]
  - DRUG HYPERSENSITIVITY [None]
  - GAIT DISTURBANCE [None]
  - INFLUENZA LIKE ILLNESS [None]
  - RECTAL HAEMORRHAGE [None]
  - BACK PAIN [None]
  - HAEMORRHOIDS [None]
  - DIARRHOEA [None]
  - INTERVERTEBRAL DISC DISORDER [None]
  - LUMBAR SPINAL STENOSIS [None]
  - WEIGHT DECREASED [None]
  - GENERAL SYMPTOM [None]
  - SPINAL COLUMN STENOSIS [None]
